FAERS Safety Report 9684915 (Version 1)
Quarter: 2013Q4

REPORT INFORMATION
  Report Type: Spontaneous
  Country: US (occurrence: US)
  Receive Date: 20131113
  Receipt Date: 20131113
  Transmission Date: 20140711
  Serious: No
  Sender: FDA-Public Use
  Company Number: US-009507513-1311USA003478

PATIENT
  Sex: Female
  Weight: 90.25 kg

DRUGS (2)
  1. IMPLANON [Suspect]
     Dosage: LEFT ARM
     Route: 059
     Dates: start: 2010
  2. NEXPLANON [Concomitant]
     Dosage: RIGHT ARM
     Route: 059
     Dates: start: 20131030

REACTIONS (2)
  - Medical device complication [Unknown]
  - Incorrect drug administration duration [Unknown]
